FAERS Safety Report 18744888 (Version 1)
Quarter: 2021Q1

REPORT INFORMATION
  Report Type: Spontaneous
  Country: US (occurrence: US)
  Receive Date: 20210114
  Receipt Date: 20210114
  Transmission Date: 20210419
  Serious: Yes (Hospitalization)
  Sender: FDA-Public Use
  Company Number: None

PATIENT
  Sex: Female

DRUGS (1)
  1. AVONEX [Suspect]
     Active Substance: INTERFERON BETA-1A
     Indication: MULTIPLE SCLEROSIS
     Route: 030
     Dates: start: 20130222

REACTIONS (8)
  - Hypoaesthesia [None]
  - Urinary tract infection [None]
  - Nephrolithiasis [None]
  - Ligament sprain [None]
  - Pain [None]
  - Spondylitis [None]
  - Spinal stenosis [None]
  - Fall [None]
